FAERS Safety Report 11888202 (Version 1)
Quarter: 2016Q1

REPORT INFORMATION
  Report Type: Report from Study
  Country: JP (occurrence: JP)
  Receive Date: 20160105
  Receipt Date: 20160105
  Transmission Date: 20160526
  Serious: Yes (Other)
  Sender: FDA-Public Use
  Company Number: JP-ASTELLAS-2010JP003369

PATIENT
  Age: 43 Year
  Sex: Female
  Weight: 61 kg

DRUGS (78)
  1. PREDNISOLONE. [Suspect]
     Active Substance: PREDNISOLONE
     Dosage: 15-5MG, ALTERNATELY
     Route: 048
     Dates: start: 20090521, end: 20090924
  2. PREDNISOLONE. [Suspect]
     Active Substance: PREDNISOLONE
     Dosage: UNK UNK, ONCE DAILY
     Route: 048
     Dates: start: 20120802, end: 20121121
  3. GASTER [Concomitant]
     Active Substance: FAMOTIDINE
     Indication: PRODUCT USED FOR UNKNOWN INDICATION
     Route: 048
     Dates: end: 20090528
  4. MYSER                              /01249201/ [Concomitant]
     Indication: PRODUCT USED FOR UNKNOWN INDICATION
     Dosage: UNK UNK, UNKNOWN FREQ.
     Route: 061
     Dates: start: 20100909, end: 20101021
  5. COCARL [Concomitant]
     Active Substance: ACETAMINOPHEN
     Indication: TOOTH EXTRACTION
     Route: 048
     Dates: start: 20111013, end: 20111018
  6. EPADEL-S [Concomitant]
     Active Substance: ICOSAPENT ETHYL
     Route: 048
     Dates: start: 20130418
  7. PERSANTINE [Concomitant]
     Active Substance: DIPYRIDAMOLE
     Indication: LUPUS NEPHRITIS
     Route: 048
     Dates: end: 20121017
  8. PARIET [Concomitant]
     Active Substance: RABEPRAZOLE SODIUM
     Indication: BACK PAIN
     Route: 048
     Dates: end: 20130515
  9. GLAKAY [Concomitant]
     Active Substance: MENATETRENONE
     Indication: PROPHYLAXIS
     Route: 048
     Dates: start: 20100422
  10. BREDININ [Concomitant]
     Active Substance: MIZORIBINE
     Route: 048
     Dates: start: 20130711, end: 20130918
  11. SELBEX [Concomitant]
     Active Substance: TEPRENONE
     Indication: OROPHARYNGEAL PAIN
  12. PREDNISOLONE. [Suspect]
     Active Substance: PREDNISOLONE
     Dosage: UNK UNK, ONCE DAILY
     Route: 048
     Dates: start: 20091105, end: 20100128
  13. PREDNISOLONE. [Suspect]
     Active Substance: PREDNISOLONE
     Dosage: 5-12.5MG, ALTERNATELY
     Route: 048
     Dates: start: 20101021, end: 20110831
  14. PREDNISOLONE. [Suspect]
     Active Substance: PREDNISOLONE
     Dosage: UNK UNK, ONCE DAILY
     Route: 048
     Dates: start: 20110901, end: 20120104
  15. FLOMOX [Suspect]
     Active Substance: CEFCAPENE PIVOXIL HYDROCHLORIDE HYDRATE
     Indication: NASOPHARYNGITIS
     Route: 048
     Dates: start: 20091228, end: 20100101
  16. ZITHROMAC [Suspect]
     Active Substance: AZITHROMYCIN DIHYDRATE
     Indication: TOOTH EXTRACTION
     Route: 048
     Dates: start: 20111013, end: 20111014
  17. PL [Concomitant]
     Active Substance: ACETAMINOPHEN\CAFFEINE\PROMETHAZINE\SALICYLAMIDE
     Indication: NASOPHARYNGITIS
     Route: 048
     Dates: start: 20110901, end: 20110908
  18. COCARL [Concomitant]
     Active Substance: ACETAMINOPHEN
     Indication: BACK PAIN
     Route: 048
     Dates: start: 20120105, end: 20120115
  19. LUTORAL [Concomitant]
     Active Substance: CHLORMADINONE ACETATE\MESTRANOL
     Route: 048
     Dates: start: 20090714, end: 20090728
  20. BREDININ [Concomitant]
     Active Substance: MIZORIBINE
     Route: 048
     Dates: start: 20130919, end: 20131016
  21. JUVELA N [Concomitant]
     Active Substance: TOCOPHERYL NICOTINATE, D-.ALPHA.
     Indication: LUPUS NEPHRITIS
     Route: 048
     Dates: start: 20130321, end: 20130417
  22. PREDNISOLONE. [Suspect]
     Active Substance: PREDNISOLONE
     Dosage: 17.5-5MG, ALTERNATELY
     Route: 048
     Dates: start: 20130124, end: 20130417
  23. PREDNISOLONE. [Suspect]
     Active Substance: PREDNISOLONE
     Route: 048
     Dates: start: 20130613, end: 20130710
  24. BUSCOPAN [Concomitant]
     Active Substance: BUTYLSCOPOLAMINE BROMIDE
     Indication: ABDOMINAL PAIN
     Route: 048
     Dates: start: 20120802, end: 20120808
  25. EPADEL-S [Concomitant]
     Active Substance: ICOSAPENT ETHYL
     Indication: LUPUS NEPHRITIS
     Route: 048
     Dates: start: 20121122, end: 20130320
  26. JUVELA                             /00110502/ [Concomitant]
     Indication: RASH
     Route: 048
     Dates: end: 20080410
  27. LOXONIN [Concomitant]
     Active Substance: LOXOPROFEN SODIUM
     Indication: OROPHARYNGEAL PAIN
  28. LIPITOR [Interacting]
     Active Substance: ATORVASTATIN CALCIUM
     Indication: HYPERLIPIDAEMIA
     Route: 048
     Dates: start: 20130124, end: 20130418
  29. PREDNISOLONE. [Suspect]
     Active Substance: PREDNISOLONE
     Dosage: 17.5-5MG, ALTERNATELY
     Route: 048
     Dates: start: 20090115, end: 20090521
  30. PREDNISOLONE. [Suspect]
     Active Substance: PREDNISOLONE
     Dosage: UNK UNK, ONCE DAILY
     Route: 048
     Dates: start: 20121122, end: 20130123
  31. PREDNISOLONE. [Suspect]
     Active Substance: PREDNISOLONE
     Route: 048
     Dates: start: 20130711, end: 20130918
  32. PREDNISOLONE. [Suspect]
     Active Substance: PREDNISOLONE
     Route: 048
     Dates: start: 20140116, end: 20140219
  33. PROPETO [Concomitant]
     Indication: DRY SKIN
     Dosage: UNK UNK, UNKNOWN FREQ.
     Route: 061
     Dates: start: 20120906, end: 20121018
  34. BAKTAR [Concomitant]
     Active Substance: SULFAMETHOXAZOLE\TRIMETHOPRIM
     Indication: PROPHYLAXIS
     Dosage: 2 DF, TWICE PER WEEK
     Route: 048
     Dates: end: 20080410
  35. LUTORAL [Concomitant]
     Active Substance: CHLORMADINONE ACETATE\MESTRANOL
     Route: 048
     Dates: start: 20090630, end: 20090704
  36. LUTORAL [Concomitant]
     Active Substance: CHLORMADINONE ACETATE\MESTRANOL
     Route: 048
     Dates: start: 20100413, end: 20121031
  37. PARIET [Concomitant]
     Active Substance: RABEPRAZOLE SODIUM
     Indication: PROPHYLAXIS
     Dosage: 10-20 MG PER DAY
     Route: 048
     Dates: start: 20090528
  38. BREDININ [Concomitant]
     Active Substance: MIZORIBINE
     Indication: LUPUS NEPHRITIS
     Route: 048
     Dates: start: 20130418, end: 20130612
  39. BREDININ [Concomitant]
     Active Substance: MIZORIBINE
     Route: 048
     Dates: start: 20130613, end: 20130710
  40. ZETIA [Concomitant]
     Active Substance: EZETIMIBE
     Indication: HYPERLIPIDAEMIA
     Route: 048
     Dates: start: 20130711
  41. SELBEX [Concomitant]
     Active Substance: TEPRENONE
     Indication: NASOPHARYNGITIS
     Route: 065
     Dates: start: 20091228, end: 20100103
  42. FERROMIA [Concomitant]
     Active Substance: FERROUS CITRATE
     Indication: IRON DEFICIENCY ANAEMIA
     Route: 048
     Dates: start: 20110113, end: 20110203
  43. TACROLIMUS. [Interacting]
     Active Substance: TACROLIMUS
     Indication: LUPUS NEPHRITIS
     Route: 048
     Dates: start: 20080313
  44. PREDNISOLONE. [Suspect]
     Active Substance: PREDNISOLONE
     Indication: LUPUS NEPHRITIS
     Route: 048
     Dates: end: 20080807
  45. PREDNISOLONE. [Suspect]
     Active Substance: PREDNISOLONE
     Dosage: 20-5MG, ALTERNATELY/2 DAYS
     Route: 048
     Dates: start: 20081204, end: 20090115
  46. RESTAMIN                           /00000401/ [Concomitant]
     Indication: PRURITUS
     Dosage: UNK UNK, UNKNOWN FREQ.
     Route: 061
     Dates: start: 20110811, end: 20111005
  47. BIOFERMIN R [Concomitant]
     Active Substance: BACILLUS SUBTILIS\LACTOBACILLUS ACIDOPHILUS\STREPTOCOCCUS FAECAIS
     Indication: DIARRHOEA
     Route: 048
     Dates: start: 20111024, end: 20111027
  48. LOPEMIN                            /00384302/ [Concomitant]
     Active Substance: LOPERAMIDE HYDROCHLORIDE
     Indication: ENTEROCOLITIS VIRAL
     Route: 048
     Dates: start: 20120227, end: 20120301
  49. ONON [Concomitant]
     Active Substance: PRANLUKAST
     Indication: ALLERGIC COUGH
     Route: 048
     Dates: start: 20120621, end: 20120801
  50. EDIROL [Concomitant]
     Active Substance: ELDECALCITOL
     Indication: PROPHYLAXIS
     Dosage: 0.75 MCG, ONCE DAILY
     Route: 048
     Dates: start: 20130124
  51. PARIET [Concomitant]
     Active Substance: RABEPRAZOLE SODIUM
     Indication: DYSPEPSIA
     Route: 048
     Dates: start: 20130516
  52. PREDNISOLONE. [Suspect]
     Active Substance: PREDNISOLONE
     Dosage: UNK UNK, ONCE DAILY
     Route: 048
     Dates: start: 20090924, end: 20091105
  53. PREDNISOLONE. [Suspect]
     Active Substance: PREDNISOLONE
     Dosage: UNK UNK, ONCE DAILY
     Route: 048
     Dates: start: 20100422, end: 20100616
  54. PREDNISOLONE. [Suspect]
     Active Substance: PREDNISOLONE
     Dosage: UNK UNK, ONCE DAILY
     Route: 048
     Dates: start: 20120105, end: 20120801
  55. PREDNISOLONE. [Suspect]
     Active Substance: PREDNISOLONE
     Route: 048
     Dates: start: 20140220
  56. FLOMOX [Suspect]
     Active Substance: CEFCAPENE PIVOXIL HYDROCHLORIDE HYDRATE
     Indication: OROPHARYNGEAL PAIN
     Route: 048
     Dates: start: 20111013, end: 20111018
  57. INCREMIN                           /00023544/ [Concomitant]
     Indication: PROPHYLAXIS
  58. LAC-B [Concomitant]
     Active Substance: BIFIDOBACTERIUM SPP.
     Indication: ENTEROCOLITIS VIRAL
     Route: 048
     Dates: start: 20120227, end: 20120305
  59. BAKTAR [Concomitant]
     Active Substance: SULFAMETHOXAZOLE\TRIMETHOPRIM
     Dosage: 2 DF, THRICE PER WEEK
     Route: 048
     Dates: start: 20130321
  60. LUTORAL [Concomitant]
     Active Substance: CHLORMADINONE ACETATE\MESTRANOL
     Route: 048
     Dates: start: 20090115, end: 20090124
  61. PREMARIN [Concomitant]
     Active Substance: ESTROGENS, CONJUGATED
     Indication: OVARIAN FAILURE
     Route: 048
     Dates: start: 20100413, end: 20121031
  62. BREDININ [Concomitant]
     Active Substance: MIZORIBINE
     Route: 048
     Dates: start: 20131017, end: 20140219
  63. PREDNISOLONE. [Suspect]
     Active Substance: PREDNISOLONE
     Route: 048
     Dates: start: 20080807, end: 20081204
  64. PREDNISOLONE. [Suspect]
     Active Substance: PREDNISOLONE
     Dosage: UNK UNK, ONCE DAILY
     Route: 048
     Dates: start: 20100128, end: 20100421
  65. INCREMIN                           /00023544/ [Concomitant]
     Indication: IRON DEFICIENCY ANAEMIA
     Route: 048
     Dates: start: 20110331, end: 20121219
  66. LAC-B [Concomitant]
     Active Substance: BIFIDOBACTERIUM SPP.
     Indication: DIARRHOEA
     Route: 048
     Dates: start: 20121109, end: 20121112
  67. LUTORAL [Concomitant]
     Active Substance: CHLORMADINONE ACETATE\MESTRANOL
     Indication: OVARIAN FAILURE
     Route: 048
     Dates: start: 20080703, end: 20080712
  68. FOSAMAC [Concomitant]
     Active Substance: ALENDRONATE SODIUM
     Indication: PRODUCT USED FOR UNKNOWN INDICATION
     Route: 048
     Dates: start: 20091217, end: 20100128
  69. MEVALOTIN [Concomitant]
     Active Substance: PRAVASTATIN SODIUM
     Indication: HYPERLIPIDAEMIA
     Route: 048
     Dates: start: 20100729, end: 20100909
  70. PREDNISOLONE. [Suspect]
     Active Substance: PREDNISOLONE
     Dosage: UNK UNK, ONCE DAILY
     Route: 048
     Dates: start: 20100617, end: 20101020
  71. PREDNISOLONE. [Suspect]
     Active Substance: PREDNISOLONE
     Route: 048
     Dates: start: 20130418, end: 20130612
  72. PREDNISOLONE. [Suspect]
     Active Substance: PREDNISOLONE
     Route: 048
     Dates: start: 20130919, end: 20140115
  73. FLOMOX [Suspect]
     Active Substance: CEFCAPENE PIVOXIL HYDROCHLORIDE HYDRATE
     Indication: TOOTH EXTRACTION
  74. ALFAROL [Concomitant]
     Active Substance: ALFACALCIDOL
     Indication: PROPHYLAXIS
     Dosage: 0.25 MCG, ONCE DAILY
     Route: 048
     Dates: end: 20130123
  75. ISODINE [Concomitant]
     Active Substance: POVIDONE-IODINE
     Indication: PRODUCT USED FOR UNKNOWN INDICATION
     Dosage: UNK UNK, UNKNOWN FREQ.
     Route: 061
     Dates: end: 20090521
  76. IMURAN [Concomitant]
     Active Substance: AZATHIOPRINE
     Indication: LUPUS NEPHRITIS
     Route: 048
     Dates: start: 20130321, end: 20130417
  77. INDOMETACIN [Concomitant]
     Active Substance: INDOMETHACIN
     Indication: PAIN IN EXTREMITY
     Dosage: UNK UNK, UNKNOWN FREQ.
     Route: 061
     Dates: start: 20130418, end: 20130612
  78. LOXONIN [Concomitant]
     Active Substance: LOXOPROFEN SODIUM
     Indication: NASOPHARYNGITIS
     Route: 065
     Dates: start: 20091228, end: 20100103

REACTIONS (23)
  - Eczema [Recovering/Resolving]
  - Muscle spasms [Recovering/Resolving]
  - Oropharyngeal pain [Recovering/Resolving]
  - Diarrhoea [Recovering/Resolving]
  - Intentional product use issue [Unknown]
  - Allergic cough [Recovered/Resolved]
  - Enterocolitis viral [Recovering/Resolving]
  - Dyspepsia [Recovering/Resolving]
  - Diarrhoea [Recovering/Resolving]
  - Pain in extremity [Recovering/Resolving]
  - Rash [Recovering/Resolving]
  - Dyspepsia [Recovering/Resolving]
  - Back pain [Recovering/Resolving]
  - Dry skin [Recovering/Resolving]
  - Drug interaction [Unknown]
  - Hyperlipidaemia [Not Recovered/Not Resolved]
  - Pruritus [Recovering/Resolving]
  - Back pain [Recovering/Resolving]
  - Nasopharyngitis [Recovering/Resolving]
  - Iron deficiency anaemia [Recovered/Resolved]
  - Abdominal pain [Recovered/Resolved]
  - Dental caries [Recovering/Resolving]
  - Nasopharyngitis [Recovering/Resolving]

NARRATIVE: CASE EVENT DATE: 20090528
